FAERS Safety Report 7279401-2 (Version None)
Quarter: 2011Q1

REPORT INFORMATION
  Report Type: 
  Country: None (occurrence: None)
  Receive Date: 20110208
  Receipt Date: 20110128
  Transmission Date: 20110831
  Serious: Yes (Hospitalization, Other)
  Sender: FDA-Public Use
  Company Number: US-BIOGENIDEC-2010BI044884

PATIENT
  Age: 26 Year
  Sex: Female

DRUGS (2)
  1. EFFEXOR [Concomitant]
  2. TYSABRI [Suspect]
     Indication: MULTIPLE SCLEROSIS
     Route: 042
     Dates: start: 20090209, end: 20100118

REACTIONS (2)
  - BRADYCARDIA FOETAL [None]
  - PREGNANCY [None]
